FAERS Safety Report 19725062 (Version 5)
Quarter: 2021Q4

REPORT INFORMATION
  Report Type: Report from Study
  Country: US (occurrence: US)
  Receive Date: 20210820
  Receipt Date: 20211217
  Transmission Date: 20220303
  Serious: No
  Sender: FDA-Public Use
  Company Number: NVSC2021US186111

PATIENT
  Age: 76 Year
  Sex: Female

DRUGS (5)
  1. ENTRESTO [Suspect]
     Active Substance: SACUBITRIL\VALSARTAN
     Indication: Product used for unknown indication
     Dosage: 1 DF, BID (24/26 MG)
     Route: 048
     Dates: start: 20210810
  2. METOPROLOL TARTRATE [Suspect]
     Active Substance: METOPROLOL TARTRATE
     Indication: Product used for unknown indication
     Dosage: UNK
     Route: 065
  3. LASIX [Suspect]
     Active Substance: FUROSEMIDE
     Indication: Product used for unknown indication
     Dosage: UNK
     Route: 065
  4. PROTONIX [Suspect]
     Active Substance: PANTOPRAZOLE SODIUM
     Indication: Product used for unknown indication
     Dosage: UNK
     Route: 065
  5. SYNTHROID [Suspect]
     Active Substance: LEVOTHYROXINE SODIUM
     Indication: Product used for unknown indication
     Dosage: UNK
     Route: 065

REACTIONS (11)
  - Vision blurred [Unknown]
  - Throat clearing [Unknown]
  - Dry mouth [Unknown]
  - Diarrhoea [Unknown]
  - Fatigue [Unknown]
  - Joint injury [Unknown]
  - Inappropriate schedule of product administration [Unknown]
  - Back pain [Unknown]
  - Asthenia [Unknown]
  - Hypoacusis [Unknown]
  - Productive cough [Unknown]

NARRATIVE: CASE EVENT DATE: 20210812
